FAERS Safety Report 5721452-0 (Version None)
Quarter: 2008Q2

REPORT INFORMATION
  Report Type: 
  Country: None (occurrence: None)
  Receive Date: 20080429
  Receipt Date: 20080424
  Transmission Date: 20081010
  Serious: Yes (Hospitalization)
  Sender: FDA-Public Use
  Company Number: JP-ASTRAZENECA-2008AP03148

PATIENT
  Age: 77 Year
  Sex: Male

DRUGS (2)
  1. OMEPRAL [Suspect]
     Indication: DUODENAL ULCER HAEMORRHAGE
     Route: 048
     Dates: start: 20080401, end: 20080403
  2. FERROMIA [Suspect]
     Route: 048
     Dates: start: 20080401

REACTIONS (1)
  - ENTEROCOLITIS [None]
